FAERS Safety Report 14432340 (Version 2)
Quarter: 2018Q1

REPORT INFORMATION
  Report Type: Spontaneous
  Country: FR (occurrence: FR)
  Receive Date: 20180124
  Receipt Date: 20180312
  Transmission Date: 20180509
  Serious: Yes (Other)
  Sender: FDA-Public Use
  Company Number: FR-PFIZER INC-2018029526

PATIENT
  Age: 78 Year
  Sex: Male
  Weight: 100 kg

DRUGS (9)
  1. ALPRAZOLAM. [Concomitant]
     Active Substance: ALPRAZOLAM
     Dosage: 0.25 UNK, 2X/DAY
  2. INEXIUM /01479303/ [Concomitant]
     Active Substance: ESOMEPRAZOLE
     Dosage: 1 DF, 1X/DAY
  3. DEBRIDAT /00465201/ [Concomitant]
     Active Substance: TRIMEBUTINE MALEATE
     Dosage: 200 UNK, 2X/DAY
  4. EFFEXOR LP [Suspect]
     Active Substance: VENLAFAXINE HYDROCHLORIDE
     Dosage: 37.5 MG, 1X/DAY IN THE MORNING
     Dates: start: 201609
  5. TRANSIPEG /00754501/ [Concomitant]
     Active Substance: POLYETHYLENE GLYCOL 3350
     Dosage: 1 DF, 1X/DAY
  6. SOTALOL MYLAN [Interacting]
     Active Substance: SOTALOL
     Dosage: UNK
     Dates: start: 201709
  7. ELIQUIS [Concomitant]
     Active Substance: APIXABAN
     Dosage: 1 DF, 2X/DAY
  8. EFFEXOR LP [Interacting]
     Active Substance: VENLAFAXINE HYDROCHLORIDE
     Dosage: 75 MG, UNK
     Dates: start: 201701
  9. SOTALEX [Concomitant]
     Active Substance: SOTALOL
     Dosage: 160 UNK, 2X/DAY

REACTIONS (6)
  - Blood pressure fluctuation [Not Recovered/Not Resolved]
  - Night sweats [Unknown]
  - Arrhythmia [Unknown]
  - Drug interaction [Not Recovered/Not Resolved]
  - Hot flush [Unknown]
  - Poor quality sleep [Unknown]

NARRATIVE: CASE EVENT DATE: 201710
